FAERS Safety Report 5829541-7 (Version None)
Quarter: 2008Q3

REPORT INFORMATION
  Report Type: 
  Country: None (occurrence: None)
  Receive Date: 20080729
  Receipt Date: 20080715
  Transmission Date: 20090109
  Serious: Yes (Hospitalization)
  Sender: FDA-Public Use
  Company Number: 236702J08USA

PATIENT
  Age: 28 Year
  Sex: Female
  Weight: 49.8957 kg

DRUGS (7)
  1. REBIF [Suspect]
     Indication: MULTIPLE SCLEROSIS
     Dosage: 44 MCG, 3 IN WEEKS, SUBCUTANEOUS
     Route: 058
     Dates: start: 20080124, end: 20080101
  2. REBIF [Suspect]
     Indication: MULTIPLE SCLEROSIS
     Dosage: 44 MCG, 3 IN WEEKS, SUBCUTANEOUS
     Route: 058
     Dates: start: 20080401
  3. BACLOFEN [Concomitant]
  4. DITROPAN [Concomitant]
  5. TEMAZEPAM [Concomitant]
  6. NEURONTIN [Concomitant]
  7. DARVOCET [Concomitant]

REACTIONS (5)
  - ANAEMIA [None]
  - DYSPHAGIA [None]
  - DYSPNOEA [None]
  - GASTRIC PERFORATION [None]
  - GASTROOESOPHAGEAL REFLUX DISEASE [None]
